FAERS Safety Report 20932711 (Version 1)
Quarter: 2022Q2

REPORT INFORMATION
  Report Type: Spontaneous
  Country: US (occurrence: US)
  Receive Date: 20220608
  Receipt Date: 20220608
  Transmission Date: 20220721
  Serious: No
  Sender: FDA-Public Use
  Company Number: US-PFIZER INC-202200800693

PATIENT
  Age: 27 Year
  Sex: Male
  Weight: 70.37 kg

DRUGS (2)
  1. PRISTIQ EXTENDED-RELEASE [Suspect]
     Active Substance: DESVENLAFAXINE SUCCINATE
     Indication: Depression suicidal
     Dosage: 25 MG, 1X/DAY(FOR 7 DAYS)
     Dates: start: 20201119, end: 20201129
  2. PRISTIQ EXTENDED-RELEASE [Suspect]
     Active Substance: DESVENLAFAXINE SUCCINATE
     Dosage: 50 MG, 1X/DAY(FOR 3 DAYS)

REACTIONS (8)
  - Illness [Unknown]
  - Affective disorder [Unknown]
  - Male sexual dysfunction [Unknown]
  - Nightmare [Unknown]
  - Hyperhidrosis [Unknown]
  - Yawning [Unknown]
  - Feeling abnormal [Unknown]
  - Personality disorder [Unknown]
